FAERS Safety Report 7688743-8 (Version None)
Quarter: 2011Q3

REPORT INFORMATION
  Report Type: 
  Country: None (occurrence: None)
  Receive Date: 20110817
  Receipt Date: 20110809
  Transmission Date: 20111222
  Serious: Yes (Other)
  Sender: FDA-Public Use
  Company Number: US-B.I. PHARMACEUTICALS,INC./RIDGEFIELD-2011-BP-19419BP

PATIENT
  Age: 27 Year
  Sex: Female

DRUGS (3)
  1. TRUVADA [Concomitant]
     Indication: ANTIVIRAL TREATMENT
     Dosage: 1
     Route: 048
     Dates: start: 20101221
  2. VIRAMUNE [Suspect]
     Indication: ANTIVIRAL TREATMENT
     Dosage: 400 MG
     Route: 048
     Dates: start: 20101221
  3. ISENTRESS [Concomitant]
     Indication: ANTIVIRAL TREATMENT
     Dosage: 800 MG
     Route: 048
     Dates: start: 20101221

REACTIONS (1)
  - ABORTION SPONTANEOUS [None]
